FAERS Safety Report 7010431-1 (Version None)
Quarter: 2010Q3

REPORT INFORMATION
  Report Type: 
  Country: None (occurrence: None)
  Receive Date: 20100923
  Receipt Date: 20100915
  Transmission Date: 20110219
  Serious: Yes (Other)
  Sender: FDA-Public Use
  Company Number: US-PURDUE-USA-2010-0047119

PATIENT
  Age: 34 Year
  Sex: Female

DRUGS (1)
  1. OXYCONTIN [Suspect]
     Indication: BACK PAIN
     Dosage: 60 MG, TID
     Dates: start: 20051201

REACTIONS (3)
  - INSOMNIA [None]
  - PAIN [None]
  - SURGERY [None]
